FAERS Safety Report 17118184 (Version 1)
Quarter: 2019Q4

REPORT INFORMATION
  Report Type: Other
  Country: IT (occurrence: IT)
  Receive Date: 20191205
  Receipt Date: 20191205
  Transmission Date: 20200122
  Serious: Yes (Hospitalization)
  Sender: FDA-Public Use
  Company Number: IT-INCYTE CORPORATION-2019IN012016

PATIENT

DRUGS (1)
  1. JAKAVI [Suspect]
     Active Substance: RUXOLITINIB
     Indication: MYELOFIBROSIS
     Dosage: 5 MG, QD
     Route: 048
     Dates: start: 20171116

REACTIONS (1)
  - Subdural haematoma [Recovered/Resolved]

NARRATIVE: CASE EVENT DATE: 20190808
